FAERS Safety Report 18139459 (Version 2)
Quarter: 2020Q3

REPORT INFORMATION
  Report Type: Spontaneous
  Country: BR (occurrence: BR)
  Receive Date: 20200812
  Receipt Date: 20200817
  Transmission Date: 20201103
  Serious: Yes (Other)
  Sender: FDA-Public Use
  Company Number: BR-EMD SERONO-9179950

PATIENT
  Age: 53 Year
  Sex: Female
  Weight: 52 kg

DRUGS (5)
  1. DORENE [Concomitant]
     Active Substance: PREGABALIN
     Indication: ARTHRITIS
     Dates: start: 20200805, end: 20200805
  2. DORENE [Concomitant]
     Active Substance: PREGABALIN
     Indication: OSTEOARTHRITIS
  3. METFORMIN [Suspect]
     Active Substance: METFORMIN HYDROCHLORIDE
     Indication: DIABETES MELLITUS
     Route: 048
     Dates: start: 2010
  4. METOPROLOL SUCCINATE. [Interacting]
     Active Substance: METOPROLOL SUCCINATE
     Indication: ARRHYTHMIA
     Dates: start: 2018
  5. METFORMIN [Interacting]
     Active Substance: METFORMIN HYDROCHLORIDE
     Dosage: RESUMED
     Route: 048
     Dates: start: 202008

REACTIONS (12)
  - Hypertension [Recovered/Resolved]
  - Arthritis [Not Recovered/Not Resolved]
  - Dizziness [Not Recovered/Not Resolved]
  - Osteoarthritis [Not Recovered/Not Resolved]
  - Arrhythmia [Not Recovered/Not Resolved]
  - Drug interaction [Unknown]
  - Hypersensitivity [Recovered/Resolved]
  - Feeling drunk [Not Recovered/Not Resolved]
  - Tachycardia [Recovered/Resolved]
  - Hypercholesterolaemia [Not Recovered/Not Resolved]
  - Blood glucose increased [Recovered/Resolved]
  - Pruritus [Recovered/Resolved]

NARRATIVE: CASE EVENT DATE: 2018
